FAERS Safety Report 4783172-9 (Version None)
Quarter: 2005Q3

REPORT INFORMATION
  Report Type: 
  Country: None (occurrence: None)
  Receive Date: 20050929
  Receipt Date: 20050927
  Transmission Date: 20060218
  Serious: Yes (Hospitalization)
  Sender: FDA-Public Use
  Company Number: US-GLAXOSMITHKLINE-A0576085A

PATIENT
  Age: 62 Year
  Sex: Female

DRUGS (10)
  1. AVANDIA [Suspect]
     Dosage: 4MG PER DAY
     Route: 048
     Dates: start: 20050601, end: 20050801
  2. METFORMIN [Concomitant]
  3. GLYBURIDE [Concomitant]
  4. METHIMAZOLE [Concomitant]
  5. ADALAT [Concomitant]
  6. LASIX [Concomitant]
  7. POTASSIUM [Concomitant]
  8. LORAZEPAM [Concomitant]
  9. ENALAPRIL [Concomitant]
  10. MECLIZINE HCL [Concomitant]

REACTIONS (4)
  - OEDEMA PERIPHERAL [None]
  - PULMONARY OEDEMA [None]
  - WEIGHT INCREASED [None]
  - WHEEZING [None]
